FAERS Safety Report 10592771 (Version 1)
Quarter: 2014Q4

REPORT INFORMATION
  Report Type: Spontaneous
  Country: US (occurrence: US)
  Receive Date: 20141119
  Receipt Date: 20141119
  Transmission Date: 20150529
  Serious: Yes (Other)
  Sender: FDA-Public Use
  Company Number: US-PFIZER INC-2014318105

PATIENT
  Age: 50 Year
  Sex: Female
  Weight: 77.98 kg

DRUGS (1)
  1. LYRICA [Suspect]
     Active Substance: PREGABALIN
     Indication: FIBROMYALGIA
     Dosage: UNK
     Dates: start: 201211, end: 201407

REACTIONS (8)
  - Pain in extremity [Unknown]
  - Pain [Unknown]
  - Fibromyalgia [Unknown]
  - Malaise [Unknown]
  - Feeling abnormal [Unknown]
  - Paraesthesia [Unknown]
  - Systemic lupus erythematosus [Unknown]
  - Condition aggravated [Unknown]
